FAERS Safety Report 4283357-4 (Version None)
Quarter: 2004Q1

REPORT INFORMATION
  Report Type: 
  Country: None (occurrence: None)
  Receive Date: 20040129
  Receipt Date: 20040116
  Transmission Date: 20041129
  Serious: Yes (Life-Threatening)
  Sender: FDA-Public Use
  Company Number: 2004003436

PATIENT
  Age: 90 Year
  Sex: Female

DRUGS (2)
  1. DIFLUCAN [Suspect]
     Indication: URINARY TRACT INFECTION FUNGAL
     Dosage: 200 MG, INTRAVENOUS
     Route: 042
  2. TIENAM (IMIPENEM, CILASTATIN) [Suspect]
     Indication: URINARY TRACT INFECTION FUNGAL
     Dosage: 1 GRAM, INTRAVENOUS
     Route: 042

REACTIONS (1)
  - DUODENAL PERFORATION [None]
